FAERS Safety Report 8938505 (Version 1)
Quarter: 2012Q4

REPORT INFORMATION
  Report Type: 
  Country: BE (occurrence: BE)
  Receive Date: 20121130
  Receipt Date: 20121130
  Transmission Date: 20130627
  Serious: Yes (Hospitalization, Other)
  Sender: FDA-Public Use
  Company Number: BE-BRISTOL-MYERS SQUIBB COMPANY-17158122

PATIENT
  Age: 73 Year
  Sex: Female
  Weight: 87 kg

DRUGS (11)
  1. GLUCOPHAGE [Suspect]
     Indication: TYPE 2 DIABETES MELLITUS
     Route: 048
     Dates: start: 20121029
  2. SELOZOK [Concomitant]
  3. FEMARA [Concomitant]
  4. RANITIDINE [Concomitant]
  5. BURINEX [Concomitant]
  6. ASAFLOW [Concomitant]
  7. NOVOMIX [Concomitant]
     Dosage: 1Df= 30
  8. ZOCOR [Concomitant]
  9. HYGROTON [Concomitant]
  10. MARCOUMAR [Concomitant]
  11. D-CURE [Concomitant]

REACTIONS (9)
  - Lactic acidosis [Unknown]
  - Dizziness [Recovering/Resolving]
  - Dyspnoea [Recovering/Resolving]
  - Weight increased [Recovering/Resolving]
  - Anuria [Recovering/Resolving]
  - Abdominal pain upper [Recovering/Resolving]
  - Nausea [Recovering/Resolving]
  - Vomiting [Recovering/Resolving]
  - Diarrhoea [Recovering/Resolving]
